FAERS Safety Report 7057992-4 (Version None)
Quarter: 2010Q4

REPORT INFORMATION
  Report Type: 
  Country: None (occurrence: None)
  Receive Date: 20101022
  Receipt Date: 20101007
  Transmission Date: 20110411
  Serious: Yes (Death, Hospitalization)
  Sender: FDA-Public Use
  Company Number: PHHY2010BE66365

PATIENT

DRUGS (6)
  1. ALISKIREN / HCTZ ALH+TAB [Suspect]
     Dosage: 150/25 MG
     Route: 048
     Dates: start: 20100407
  2. CARDIOASPIRIN [Concomitant]
     Indication: HYPERTENSION
     Dosage: UNK
     Dates: start: 20090101
  3. NOBITEN [Concomitant]
     Indication: HYPERTENSION
     Dosage: 100 MG
     Dates: start: 20090101
  4. LIPITOR [Concomitant]
     Indication: HYPERCHOLESTEROLAEMIA
     Dosage: 20 MG
     Dates: start: 20090101
  5. TAMSULOSIN [Concomitant]
     Indication: BENIGN PROSTATIC HYPERPLASIA
     Dosage: UNK
     Dates: start: 20090101
  6. METFORMIN HCL [Concomitant]
     Indication: DIABETES MELLITUS
     Dosage: 850 MG
     Dates: start: 20090101

REACTIONS (1)
  - CARDIAC FAILURE [None]
